FAERS Safety Report 10896617 (Version 1)
Quarter: 2015Q1

REPORT INFORMATION
  Report Type: Report from Study
  Country: US (occurrence: US)
  Receive Date: 20150309
  Receipt Date: 20150309
  Transmission Date: 20150721
  Serious: Yes (Hospitalization)
  Sender: FDA-Public Use
  Company Number: US-AMGEN-USASL2015019963

PATIENT
  Age: 61 Year
  Sex: Female

DRUGS (1)
  1. ENBREL [Suspect]
     Active Substance: ETANERCEPT
     Indication: PSORIASIS
     Dosage: UNK UNK, 2 TIMES/WK
     Route: 058
     Dates: start: 201501, end: 20150204

REACTIONS (4)
  - Somnolence [Unknown]
  - Confusional state [Unknown]
  - Tongue ulceration [Unknown]
  - Mouth ulceration [Unknown]

NARRATIVE: CASE EVENT DATE: 20150205
